FAERS Safety Report 4333112-1 (Version None)
Quarter: 2004Q2

REPORT INFORMATION
  Report Type: 
  Country: None (occurrence: None)
  Receive Date: 20040402
  Receipt Date: 20040325
  Transmission Date: 20050107
  Serious: Yes (Other)
  Sender: FDA-Public Use
  Company Number: HQWYE114025MAR04

PATIENT
  Age: 28 Year
  Sex: Female

DRUGS (8)
  1. PANTOZOL (PANTOPRAZOLE, TABLET, DELAYED RELEASE) [Suspect]
     Dosage: 20 MG (15 TABLETS ON 24-NOV)  NOT CLEAR IF ON DEMAND THERAPY OR IF SHE TOOK FOR 15 SUCCESSIVE DAYS
     Route: 048
     Dates: start: 20031101
  2. PANTOZOL (PANTOPRAZOLE, TABLET, DELAYED RELEASE) [Suspect]
     Dosage: 20 MG (15 TABLETS ON 24-NOV)  NOT CLEAR IF ON DEMAND THERAPY OR IF SHE TOOK FOR 15 SUCCESSIVE DAYS
     Route: 048
     Dates: start: 20040122
  3. AMITRIPTYLINE HCL [Suspect]
     Dosage: 10 MG
     Route: 048
     Dates: start: 20031118
  4. CILEST (ETHINYLESTRADIOL/NORGESTIMATE) [Concomitant]
  5. OMEPRAZOLE [Concomitant]
  6. MCP-RATIOPHARM (METOCLOPRAMIDE HYDROCHLORIDE) [Concomitant]
  7. VOLTAREN EMULGEL (DICLOFENAC DIETHYLAMINE) [Concomitant]
  8. LORAZEPAM [Concomitant]

REACTIONS (1)
  - IDIOPATHIC THROMBOCYTOPENIC PURPURA [None]
